FAERS Safety Report 7565569-7 (Version None)
Quarter: 2011Q2

REPORT INFORMATION
  Report Type: 
  Country: None (occurrence: None)
  Receive Date: 20110615
  Receipt Date: 20110602
  Transmission Date: 20111010
  Serious: Yes (Other)
  Sender: FDA-Public Use
  Company Number: 2011MA006322

PATIENT
  Age: 5 Year
  Sex: Male

DRUGS (2)
  1. PHENYTOIN [Concomitant]
  2. PHENOBARBITAL TAB [Suspect]
     Indication: EPILEPSY
     Dosage: 25 MG/KG;OD

REACTIONS (8)
  - OVERDOSE [None]
  - DYSTONIA [None]
  - TOXIC ENCEPHALOPATHY [None]
  - EMOTIONAL DISORDER [None]
  - CONDITION AGGRAVATED [None]
  - NERVOUS SYSTEM DISORDER [None]
  - EPILEPSY [None]
  - BRAIN STEM SYNDROME [None]
